FAERS Safety Report 4483587-2 (Version None)
Quarter: 2004Q4

REPORT INFORMATION
  Report Type: 
  Country: None (occurrence: None)
  Receive Date: 20041021
  Receipt Date: 20041021
  Transmission Date: 20050328
  Serious: Yes (Other)
  Sender: FDA-Public Use
  Company Number: None

PATIENT
  Age: 40 Year
  Sex: Female
  Weight: 63.5036 kg

DRUGS (2)
  1. BRONKAID   BAYER HEALTHCARE LLC [Suspect]
     Indication: ASTHMA
     Dosage: 1 TABLET EVERY FOUR HOURS
  2. BRONKAID   BAYER HEALTHCARE LLC [Suspect]

REACTIONS (2)
  - DRUG INEFFECTIVE [None]
  - PHARMACEUTICAL PRODUCT COMPLAINT [None]
